FAERS Safety Report 19458476 (Version 1)
Quarter: 2021Q2

REPORT INFORMATION
  Report Type: Spontaneous
  Country: US (occurrence: US)
  Receive Date: 20210624
  Receipt Date: 20210624
  Transmission Date: 20210717
  Serious: Yes (Other)
  Sender: FDA-Public Use
  Company Number: None

PATIENT
  Age: 36 Year
  Sex: Female

DRUGS (1)
  1. ASSURED INSTANT HAND SANITIZER [Suspect]
     Active Substance: ALCOHOL
     Dosage: ?          QUANTITY:1 1;OTHER ROUTE:HAND SANITIZE?

REACTIONS (3)
  - Liquid product physical issue [None]
  - Pruritus [None]
  - Product odour abnormal [None]

NARRATIVE: CASE EVENT DATE: 20210615
